FAERS Safety Report 4578534-9 (Version None)
Quarter: 2005Q1

REPORT INFORMATION
  Report Type: 
  Country: None (occurrence: None)
  Receive Date: 20050204
  Receipt Date: 20050204
  Transmission Date: 20050727
  Serious: No
  Sender: FDA-Public Use
  Company Number: None

PATIENT
  Age: 47 Year
  Sex: Female
  Weight: 97.5234 kg

DRUGS (2)
  1. LEVAQUIN [Suspect]
     Indication: BRONCHITIS
     Dosage: 1 PER DAY    FOR 10 DAYS
     Dates: start: 20050128, end: 20050205
  2. LEVAQUIN [Suspect]
     Indication: SINUSITIS
     Dosage: 1 PER DAY    FOR 10 DAYS
     Dates: start: 20050128, end: 20050205

REACTIONS (16)
  - ANXIETY [None]
  - ASTHMA [None]
  - BLOOD GLUCOSE DECREASED [None]
  - DIABETES MELLITUS NON-INSULIN-DEPENDENT [None]
  - FEELING JITTERY [None]
  - HALLUCINATIONS, MIXED [None]
  - HYPOAESTHESIA [None]
  - IMPAIRED WORK ABILITY [None]
  - INSOMNIA [None]
  - IRRITABILITY [None]
  - LETHARGY [None]
  - MALAISE [None]
  - NERVOUSNESS [None]
  - PERIPHERAL COLDNESS [None]
  - VISION BLURRED [None]
  - VISUAL DISTURBANCE [None]
